FAERS Safety Report 18859951 (Version 1)
Quarter: 2021Q1

REPORT INFORMATION
  Report Type: Spontaneous
  Country: US (occurrence: US)
  Receive Date: 20210208
  Receipt Date: 20210208
  Transmission Date: 20210420
  Serious: No
  Sender: FDA-Public Use
  Company Number: US-SA-2021SA037901

PATIENT
  Sex: Female

DRUGS (2)
  1. DUPIXENT [Suspect]
     Active Substance: DUPILUMAB
     Indication: ASTHMA
     Dosage: 300 MG, QOW
     Route: 058
  2. GOLD BOND ULTIMATE STRENGTH + RESILIENCE LOTION [Suspect]
     Active Substance: COSMETICS
     Dosage: UNK, TOTAL

REACTIONS (3)
  - Pruritus [Unknown]
  - Product use issue [Unknown]
  - Hypersensitivity [Unknown]
